FAERS Safety Report 11315919 (Version 1)
Quarter: 2015Q3

REPORT INFORMATION
  Report Type: Spontaneous
  Country: US (occurrence: None)
  Receive Date: 20150724
  Receipt Date: 20150724
  Transmission Date: 20151125
  Serious: Yes (Other)
  Sender: FDA-Public Use
  Company Number: 2015SMT00189

PATIENT
  Age: 67 Year
  Sex: Female

DRUGS (15)
  1. LEVOTHROID (LEVOTHYROXINE SODIUM) [Concomitant]
  2. PROMETHAZINE [Concomitant]
     Active Substance: PROMETHAZINE\PROMETHAZINE HYDROCHLORIDE
  3. POTASSIUM [Concomitant]
     Active Substance: POTASSIUM
  4. DYAZIDE (HYDROCHLOROTHIAZIDE;TRIAMTERENE) [Concomitant]
  5. GABAPENTIN. [Concomitant]
     Active Substance: GABAPENTIN
  6. PREMARIN (ESTROGENS, CONJUGATED) [Concomitant]
  7. METFORMIN [Concomitant]
     Active Substance: METFORMIN HYDROCHLORIDE
  8. HYDROCODONE [Concomitant]
     Active Substance: HYDROCODONE
  9. HUMIRA [Concomitant]
     Active Substance: ADALIMUMAB
  10. FOLIC ACID (DIETARY SUPPLEMENT) [Concomitant]
  11. REGRANEX [Suspect]
     Active Substance: BECAPLERMIN
     Indication: WOUND
     Dosage: UNK UNK, 1X/DAY, TOPICAL
     Route: 061
     Dates: start: 201506, end: 20150712
  12. LISINOPRIL. [Concomitant]
     Active Substance: LISINOPRIL
  13. PREDNISONE. [Concomitant]
     Active Substance: PREDNISONE
  14. ASPIRIN (ACETYLSALICYLIC ACID) [Concomitant]
     Active Substance: ASPIRIN
  15. METHOTREXATE [Concomitant]
     Active Substance: METHOTREXATE

REACTIONS (2)
  - Localised infection [None]
  - Decreased appetite [None]

NARRATIVE: CASE EVENT DATE: 20150711
